FAERS Safety Report 8098740-9 (Version None)
Quarter: 2012Q1

REPORT INFORMATION
  Report Type: 
  Country: None (occurrence: None)
  Receive Date: 20120131
  Receipt Date: 20120125
  Transmission Date: 20120608
  Serious: Yes (Hospitalization)
  Sender: FDA-Public Use
  Company Number: BR-PFIZER INC-2012021321

PATIENT
  Age: 71 Year
  Sex: Female

DRUGS (6)
  1. PANTOPRAZOLE [Concomitant]
     Indication: NAUSEA
     Dosage: UNK
  2. ATENOLOL [Concomitant]
     Indication: BLOOD PRESSURE
     Dosage: UNK
  3. ENALAPRIL MALEATE [Concomitant]
     Indication: BLOOD PRESSURE
     Dosage: UNK
  4. PLAVIX [Concomitant]
     Indication: ARTERIAL DISORDER
     Dosage: UNK
  5. LIPITOR [Suspect]
     Indication: BLOOD PRESSURE
     Dosage: 1 MG, 1X/DAY (1 TABLET, 1X/DAY)
     Route: 048
     Dates: start: 20111001
  6. ASPIRIN [Concomitant]
     Dosage: UNK

REACTIONS (2)
  - CEREBROVASCULAR ACCIDENT [None]
  - ARTERIAL DISORDER [None]
